FAERS Safety Report 4525739-9 (Version None)
Quarter: 2004Q4

REPORT INFORMATION
  Report Type: 
  Country: None (occurrence: None)
  Receive Date: 20041116
  Receipt Date: 20040728
  Transmission Date: 20050328
  Serious: No
  Sender: FDA-Public Use
  Company Number: S04-USA-04109-01

PATIENT
  Age: 92 Year
  Sex: Female

DRUGS (10)
  1. NAMENDA [Suspect]
     Indication: DEMENTIA ALZHEIMER'S TYPE
     Dosage: 10 MG QD PO
     Route: 048
     Dates: start: 20040601, end: 20040702
  2. NAMENDA [Suspect]
     Indication: DEMENTIA ALZHEIMER'S TYPE
     Dosage: 5 MG QD PO
     Route: 048
     Dates: start: 20040528, end: 20040601
  3. PAXIL [Concomitant]
  4. DARVOCET-N 100 [Concomitant]
  5. DETROL [Concomitant]
  6. VERAPAMIL [Concomitant]
  7. ANTIVERT ^PFIZER^ (MECLOZINE HYDROCHLORIDE) [Concomitant]
  8. PROTONIX [Concomitant]
  9. COZAAR [Concomitant]
  10. LORAZEPAM [Concomitant]

REACTIONS (2)
  - AKATHISIA [None]
  - CHOREA [None]
